FAERS Safety Report 6819769-1 (Version None)
Quarter: 2010Q3

REPORT INFORMATION
  Report Type: 
  Country: None (occurrence: None)
  Receive Date: 20100707
  Receipt Date: 20100701
  Transmission Date: 20110219
  Serious: Yes (Other)
  Sender: FDA-Public Use
  Company Number: ES-JNJFOC-20100701017

PATIENT
  Sex: Female

DRUGS (1)
  1. STELARA [Suspect]
     Indication: PUSTULAR PSORIASIS
     Route: 058

REACTIONS (3)
  - OFF LABEL USE [None]
  - PERICARDIAL EFFUSION [None]
  - POLYSEROSITIS [None]
